FAERS Safety Report 6046010-2 (Version None)
Quarter: 2009Q1

REPORT INFORMATION
  Report Type: 
  Country: None (occurrence: None)
  Receive Date: 20090116
  Receipt Date: 20090105
  Transmission Date: 20090719
  Serious: Yes (Other)
  Sender: FDA-Public Use
  Company Number: 039097

PATIENT
  Age: 23 Year
  Sex: Male
  Weight: 68 kg

DRUGS (1)
  1. CLARAVIS [Suspect]
     Indication: ACNE
     Dosage: 40 MG, BID, ORAL
     Route: 048
     Dates: start: 20071201, end: 20080501

REACTIONS (1)
  - PATERNAL DRUGS AFFECTING FOETUS [None]
